FAERS Safety Report 24391130 (Version 1)
Quarter: 2024Q4

REPORT INFORMATION
  Report Type: Spontaneous
  Country: US (occurrence: US)
  Receive Date: 20241003
  Receipt Date: 20241003
  Transmission Date: 20250115
  Serious: Yes (Other)
  Sender: BAYER
  Company Number: US-MLMSERVICE-20240923-PI201651-00033-1

PATIENT
  Age: 59 Year
  Sex: Female

DRUGS (2)
  1. ASPIRIN [Suspect]
     Active Substance: ASPIRIN
     Indication: Prophylaxis
  2. CLOPIDOGREL [Concomitant]
     Active Substance: CLOPIDOGREL BISULFATE
     Dosage: 75 MG

REACTIONS (6)
  - Anaphylactoid reaction [Unknown]
  - Throat tightness [Unknown]
  - Dyspnoea [Unknown]
  - Urticaria [Unknown]
  - Eye swelling [Unknown]
  - Lip swelling [Unknown]
